FAERS Safety Report 4600437-1 (Version None)
Quarter: 2005Q1

REPORT INFORMATION
  Report Type: 
  Country: None (occurrence: None)
  Receive Date: 20050307
  Receipt Date: 20041102
  Transmission Date: 20050727
  Serious: Yes (Other)
  Sender: FDA-Public Use
  Company Number: PHEH2004US11854

PATIENT
  Sex: Male
  Weight: 56 kg

DRUGS (2)
  1. TOPAMAX [Suspect]
  2. TRILEPTAL [Suspect]
     Indication: COMPLEX PARTIAL SEIZURES
     Dates: start: 20040501

REACTIONS (1)
  - DEMYELINATION [None]
